FAERS Safety Report 7099508-2 (Version None)
Quarter: 2010Q4

REPORT INFORMATION
  Report Type: 
  Country: None (occurrence: None)
  Receive Date: 20101112
  Receipt Date: 20101103
  Transmission Date: 20110411
  Serious: Yes (Hospitalization, Other)
  Sender: FDA-Public Use
  Company Number: US-ASTRAZENECA-2010SE52195

PATIENT
  Age: 62 Year
  Sex: Male
  Weight: 137 kg

DRUGS (10)
  1. SEROQUEL [Suspect]
     Indication: BIPOLAR DISORDER
     Route: 048
     Dates: start: 20091201, end: 20101101
  2. FERROUS SULFATE [Concomitant]
  3. OMEPRAZOLE [Concomitant]
  4. NORVASC [Concomitant]
  5. VYTORIN [Concomitant]
     Dates: start: 20080101
  6. GLYMEPERIDE [Concomitant]
  7. HYDRALAZINE [Concomitant]
  8. SOTALOL HCL [Concomitant]
  9. DIOVAN [Concomitant]
  10. WARFARIN [Concomitant]
     Dates: start: 20040101

REACTIONS (6)
  - BACK DISORDER [None]
  - DRUG DOSE OMISSION [None]
  - DYSPNOEA [None]
  - INSOMNIA [None]
  - OXYGEN SATURATION DECREASED [None]
  - WEIGHT INCREASED [None]
